FAERS Safety Report 18194443 (Version 1)
Quarter: 2020Q3

REPORT INFORMATION
  Report Type: Spontaneous
  Country: AU (occurrence: AU)
  Receive Date: 20200825
  Receipt Date: 20200825
  Transmission Date: 20201103
  Serious: Yes (Hospitalization)
  Sender: FDA-Public Use
  Company Number: AU-B.I. PHARMACEUTICALS,INC./RIDGEFIELD-2020-MI-043256

PATIENT
  Sex: Female

DRUGS (2)
  1. MICARDIS [Suspect]
     Active Substance: TELMISARTAN
     Dosage: 40MG ONCE DAILY DOSE, ONCE AT NIGHT
     Route: 065
  2. MICARDIS [Suspect]
     Active Substance: TELMISARTAN
     Indication: PRODUCT USED FOR UNKNOWN INDICATION
     Dosage: 20MG (1/2 A 40MG TABLET) ONCE A DAY
     Route: 065

REACTIONS (4)
  - Blood sodium decreased [Unknown]
  - Hypotension [Unknown]
  - Head injury [Unknown]
  - Fall [Unknown]
